FAERS Safety Report 8784587 (Version 1)
Quarter: 2012Q4

REPORT INFORMATION
  Report Type: Spontaneous
  Country: US (occurrence: None)
  Receive Date: 20120907
  Receipt Date: 20120907
  Transmission Date: 20130627
  Serious: No
  Sender: FDA-Public Use
  Company Number: None

PATIENT
  Sex: Female
  Weight: 49.9 kg

DRUGS (1)
  1. COMBIGAN [Suspect]
     Indication: GLAUCOMA
     Dates: start: 201107, end: 201208

REACTIONS (3)
  - Fatigue [None]
  - Dry mouth [None]
  - Somnolence [None]
